FAERS Safety Report 4618391-5 (Version None)
Quarter: 2005Q1

REPORT INFORMATION
  Report Type: 
  Country: None (occurrence: None)
  Receive Date: 20050323
  Receipt Date: 20050310
  Transmission Date: 20050727
  Serious: Yes (Other)
  Sender: FDA-Public Use
  Company Number: 2005043948

PATIENT
  Age: 40 Year
  Sex: Female

DRUGS (2)
  1. HYSRON-H200 (MEDROXYPROGESTERONE ACETATE) [Suspect]
     Indication: BREAST CANCER
     Dosage: ORAL
     Route: 048
  2. SPIRONOLACTONE [Concomitant]

REACTIONS (4)
  - CATARACT [None]
  - CONJUNCTIVITIS [None]
  - GLARE [None]
  - VISUAL ACUITY REDUCED [None]
